FAERS Safety Report 22591371 (Version 1)
Quarter: 2023Q2

REPORT INFORMATION
  Report Type: Spontaneous
  Country: US (occurrence: US)
  Receive Date: 20230612
  Receipt Date: 20230612
  Transmission Date: 20230721
  Serious: Yes (Other)
  Sender: FDA-Public Use
  Company Number: US-BAUSCHBL-2023BNL004870

PATIENT
  Sex: Female

DRUGS (3)
  1. LUMIFY [Suspect]
     Active Substance: BRIMONIDINE TARTRATE
     Indication: Ocular hyperaemia
     Route: 065
     Dates: start: 2013
  2. LUMIFY [Suspect]
     Active Substance: BRIMONIDINE TARTRATE
  3. ROHTO [Concomitant]
     Indication: Product used for unknown indication

REACTIONS (1)
  - Drug dependence [Unknown]
